FAERS Safety Report 7633184-2 (Version None)
Quarter: 2011Q3

REPORT INFORMATION
  Report Type: 
  Country: None (occurrence: None)
  Receive Date: 20110725
  Receipt Date: 20110720
  Transmission Date: 20111222
  Serious: Yes (Other)
  Sender: FDA-Public Use
  Company Number: CN-PFIZER INC-2011165293

PATIENT

DRUGS (1)
  1. DIFLUCAN [Suspect]
     Indication: PNEUMONIA CRYPTOCOCCAL

REACTIONS (2)
  - DEAFNESS NEUROSENSORY [None]
  - HYPERLIPIDAEMIA [None]
